FAERS Safety Report 23260691 (Version 1)
Quarter: 2023Q4

REPORT INFORMATION
  Report Type: Spontaneous
  Country: GB (occurrence: GB)
  Receive Date: 20231205
  Receipt Date: 20231205
  Transmission Date: 20240109
  Serious: Yes (Death, Hospitalization)
  Sender: FDA-Public Use
  Company Number: GB-MHRA-ADR 20569820

PATIENT
  Age: 70 Year
  Sex: Female
  Weight: 62.2 kg

DRUGS (4)
  1. ENALAPRIL MALEATE [Suspect]
     Active Substance: ENALAPRIL MALEATE
     Indication: Hypertension
     Dosage: UNK UNK,UNK,UNKNOWN,UNKNOWN
     Route: 048
  2. ATENOLOL [Concomitant]
     Active Substance: ATENOLOL
     Indication: Product used for unknown indication
     Dosage: UNK UNK,UNK,UNKNOWN
     Route: 065
  3. BENDROFLUMETHIAZIDE [Concomitant]
     Active Substance: BENDROFLUMETHIAZIDE
     Indication: Product used for unknown indication
     Dosage: UNK UNK,UNK,UNKNOWN
     Route: 065
  4. CAPECITABINE [Concomitant]
     Active Substance: CAPECITABINE
     Indication: Product used for unknown indication
     Dosage: UNK UNK,UNK,UNKNOWN
     Route: 065

REACTIONS (4)
  - Pulmonary embolism [Fatal]
  - Angioedema [Fatal]
  - Endotracheal intubation complication [Fatal]
  - Pneumothorax [Unknown]

NARRATIVE: CASE EVENT DATE: 20100111
